FAERS Safety Report 11983201 (Version 1)
Quarter: 2016Q1

REPORT INFORMATION
  Report Type: Spontaneous
  Country: US (occurrence: US)
  Receive Date: 20160201
  Receipt Date: 20160201
  Transmission Date: 20160526
  Serious: No
  Sender: FDA-Public Use
  Company Number: US-009507513-1601USA010693

PATIENT
  Age: 2 Decade
  Sex: Female

DRUGS (1)
  1. NEXPLANON [Suspect]
     Active Substance: ETONOGESTREL
     Dosage: 68 MG/ 3 YEARS
     Route: 059
     Dates: start: 2014

REACTIONS (2)
  - Implant site mass [Not Recovered/Not Resolved]
  - Pain [Unknown]
